FAERS Safety Report 7812771-2 (Version None)
Quarter: 2011Q4

REPORT INFORMATION
  Report Type: 
  Country: None (occurrence: None)
  Receive Date: 20111013
  Receipt Date: 20110718
  Transmission Date: 20120403
  Serious: No
  Sender: FDA-Public Use
  Company Number: US-NOVEN-11US002799

PATIENT
  Sex: Male

DRUGS (2)
  1. SYNTHROID [Concomitant]
     Indication: THYROID DISORDER
     Dosage: 0.75 UG, QD
     Route: 048
  2. FENTANYL [Suspect]
     Indication: CANCER PAIN
     Dosage: 100 UG X2 Q48H
     Route: 062
     Dates: start: 20110101

REACTIONS (2)
  - INADEQUATE ANALGESIA [None]
  - PRODUCT QUALITY ISSUE [None]
